FAERS Safety Report 8143732-4 (Version None)
Quarter: 2012Q1

REPORT INFORMATION
  Report Type: 
  Country: None (occurrence: None)
  Receive Date: 20120217
  Receipt Date: 20111107
  Transmission Date: 20120608
  Serious: Yes (Death, Hospitalization)
  Sender: FDA-Public Use
  Company Number: ES-CELGENEUS-144-21880-11101921

PATIENT
  Sex: Female

DRUGS (7)
  1. REVLIMID [Suspect]
     Indication: MULTIPLE MYELOMA
     Dosage: 25 MILLIGRAM
     Route: 048
     Dates: start: 20110712, end: 20110801
  2. ARANESP [Concomitant]
     Dosage: 300 MILLIGRAM
     Route: 058
     Dates: start: 20110615
  3. DEXAMETHASONE [Suspect]
     Dosage: 20 MILLIGRAM
     Route: 048
     Dates: start: 20110916, end: 20111013
  4. DEXAMETHASONE [Suspect]
     Indication: MULTIPLE MYELOMA
     Dosage: 20 MILLIGRAM
     Route: 048
     Dates: start: 20110712, end: 20110808
  5. REVLIMID [Suspect]
     Dosage: 25 MILLIGRAM
     Route: 048
     Dates: start: 20110916, end: 20111013
  6. NEUPOGEN [Concomitant]
     Indication: NEUTROPENIA
     Dosage: 300 MILLIGRAM
     Route: 058
     Dates: start: 20110809
  7. LMWH [Concomitant]
     Route: 065

REACTIONS (11)
  - NEUTROPENIA [None]
  - LUNG INFECTION [None]
  - HYPOALBUMINAEMIA [None]
  - ANXIETY [None]
  - SEPSIS [None]
  - PLATELET COUNT DECREASED [None]
  - PSEUDOMEMBRANOUS COLITIS [None]
  - HEPATIC FAILURE [None]
  - UROSEPSIS [None]
  - HAEMOGLOBIN DECREASED [None]
  - CLOSTRIDIUM TEST POSITIVE [None]
